FAERS Safety Report 13818794 (Version 1)
Quarter: 2017Q3

REPORT INFORMATION
  Report Type: Report from Study
  Country: US (occurrence: US)
  Receive Date: 20170731
  Receipt Date: 20170731
  Transmission Date: 20171127
  Serious: No
  Sender: FDA-Public Use
  Company Number: US-EXELIXIS-CABO-17008372

PATIENT
  Age: 45 Year
  Sex: Male

DRUGS (9)
  1. GABAPENTIN. [Concomitant]
     Active Substance: GABAPENTIN
  2. FLAXSEED [Concomitant]
     Active Substance: FLAX SEED
  3. JANUMET [Concomitant]
     Active Substance: METFORMIN HYDROCHLORIDE\SITAGLIPTIN PHOSPHATE
  4. ATORVASTATIN CALCIUM. [Concomitant]
     Active Substance: ATORVASTATIN CALCIUM
  5. AMLODIPINE [Concomitant]
     Active Substance: AMLODIPINE BESYLATE
  6. CABOMETYX [Suspect]
     Active Substance: CABOZANTINIB S-MALATE
     Indication: RENAL CANCER
     Dosage: 60 MG, QD
     Route: 048
     Dates: start: 20170128
  7. LISINOPRIL. [Concomitant]
     Active Substance: LISINOPRIL
  8. OMEGA 3 [Concomitant]
     Active Substance: OMEGA-3 FATTY ACIDS
  9. ASPIR LOW [Concomitant]
     Active Substance: ASPIRIN

REACTIONS (5)
  - Chest discomfort [Unknown]
  - Hypertension [Not Recovered/Not Resolved]
  - Thyroid disorder [Unknown]
  - Pain in jaw [Unknown]
  - Toothache [Unknown]

NARRATIVE: CASE EVENT DATE: 20170128
